FAERS Safety Report 5211278-9 (Version None)
Quarter: 2006Q4

REPORT INFORMATION
  Report Type: 
  Country: None (occurrence: None)
  Receive Date: 20061130
  Receipt Date: 20060427
  Transmission Date: 20070319
  Serious: Yes (Other)
  Sender: FDA-Public Use
  Company Number: WAES 0604USA04302

PATIENT
  Age: 58 Year
  Sex: Female

DRUGS (4)
  1. FOSAMAX [Suspect]
     Indication: OSTEOPOROSIS
     Dosage: 35 MG/WKY/PO;  70 MG/WKY/PO
     Route: 048
     Dates: start: 20040301, end: 20060101
  2. FOSAMAX [Suspect]
     Indication: OSTEOPOROSIS
     Dosage: 35 MG/WKY/PO;  70 MG/WKY/PO
     Route: 048
     Dates: start: 20060101, end: 20060306
  3. CALCIUM (UNSPECIFIED) [Concomitant]
  4. MULTI-VITAMINS [Concomitant]

REACTIONS (1)
  - OSTEONECROSIS [None]
